FAERS Safety Report 9000599 (Version 3)
Quarter: 2013Q4

REPORT INFORMATION
  Report Type: Spontaneous
  Country: GB (occurrence: GB)
  Receive Date: 20130107
  Receipt Date: 20131101
  Transmission Date: 20140711
  Serious: Yes (Life-Threatening)
  Sender: FDA-Public Use
  Company Number: GB-RANBAXY-2012R1-63763

PATIENT
  Age: 10 Month
  Sex: Male
  Weight: 8 kg

DRUGS (3)
  1. CO-AMOXICLAV [Suspect]
     Indication: PRODUCT USED FOR UNKNOWN INDICATION
     Dosage: UNK
     Route: 042
     Dates: start: 20120613, end: 20120613
  2. FENTANYL CITRATE [Suspect]
     Indication: ANAESTHESIA
     Dosage: UNK
     Route: 042
     Dates: start: 20120613, end: 20120613
  3. ATRACURIUM [Suspect]
     Indication: ENDOTRACHEAL INTUBATION
     Dosage: UNK
     Route: 042
     Dates: start: 20120613, end: 20120613

REACTIONS (1)
  - Anaphylactic reaction [Not Recovered/Not Resolved]
